FAERS Safety Report 7799270-1 (Version None)
Quarter: 2011Q4

REPORT INFORMATION
  Report Type: 
  Country: None (occurrence: None)
  Receive Date: 20111006
  Receipt Date: 20110419
  Transmission Date: 20120403
  Serious: No
  Sender: FDA-Public Use
  Company Number: US-GLAXOSMITHKLINE-A0923607A

PATIENT
  Age: 19 Year
  Sex: Female

DRUGS (2)
  1. NO CONCURRENT MEDICATION [Concomitant]
  2. DUAC [Suspect]
     Indication: ACNE
     Route: 061
     Dates: start: 20110414, end: 20110418

REACTIONS (4)
  - BURNING SENSATION [None]
  - PRURITUS [None]
  - ERYTHEMA [None]
  - ILL-DEFINED DISORDER [None]
